FAERS Safety Report 10573492 (Version 1)
Quarter: 2014Q4

REPORT INFORMATION
  Report Type: Report from Study
  Country: US (occurrence: US)
  Receive Date: 20141110
  Receipt Date: 20141110
  Transmission Date: 20150529
  Serious: Yes (Hospitalization)
  Sender: FDA-Public Use
  Company Number: US-SA-2014SA151845

PATIENT
  Age: 53 Year
  Sex: Female

DRUGS (2)
  1. LANTUS SOLOSTAR [Suspect]
     Active Substance: INSULIN GLARGINE
     Dosage: DOSE:60 UNIT(S)
     Route: 065
     Dates: end: 20141027
  2. SOLOSTAR [Concomitant]
     Active Substance: DEVICE
     Dates: end: 20141027

REACTIONS (2)
  - Drug administration error [Unknown]
  - Surgery [Unknown]

NARRATIVE: CASE EVENT DATE: 20141024
